FAERS Safety Report 15575503 (Version 4)
Quarter: 2018Q4

REPORT INFORMATION
  Report Type: Spontaneous
  Country: FR (occurrence: FR)
  Receive Date: 20181101
  Receipt Date: 20181129
  Transmission Date: 20190205
  Serious: Yes (Hospitalization, Other)
  Sender: FDA-Public Use
  Company Number: FR-JNJFOC-20181040654

PATIENT
  Age: 32 Year
  Sex: Female
  Weight: 47 kg

DRUGS (12)
  1. IBUPROFENE [Suspect]
     Active Substance: IBUPROFEN
     Indication: URINARY TRACT INFECTION
     Route: 048
     Dates: start: 20180517
  2. SPAGLUMIC ACID [Suspect]
     Active Substance: SPAGLUMIC ACID
     Indication: CONJUNCTIVITIS
     Route: 047
     Dates: start: 2017
  3. DUPIXENT [Suspect]
     Active Substance: DUPILUMAB
     Indication: DERMATITIS ATOPIC
     Route: 058
     Dates: start: 20171204
  4. DUPIXENT [Suspect]
     Active Substance: DUPILUMAB
     Indication: DERMATITIS ATOPIC
     Dosage: ADDITIONAL INFO: DUPIXENT
     Route: 058
     Dates: start: 20180326
  5. ZYRTEC [Suspect]
     Active Substance: CETIRIZINE HYDROCHLORIDE
     Route: 048
  6. MONURIL [Concomitant]
     Active Substance: FOSFOMYCIN TROMETHAMINE
     Indication: URINARY TRACT INFECTION
     Route: 048
     Dates: start: 20180517, end: 20180517
  7. FURADANTINE [Concomitant]
     Active Substance: NITROFURANTOIN
     Indication: URINARY TRACT INFECTION
     Dosage: 3 DF, QD
     Route: 048
     Dates: start: 20180517, end: 20180522
  8. DUPIXENT [Suspect]
     Active Substance: DUPILUMAB
     Indication: DERMATITIS ATOPIC
     Dosage: 600 MG,1X; IN TOTAL
     Route: 058
     Dates: start: 20171120, end: 20171120
  9. MONAZOL [Concomitant]
     Active Substance: SERTACONAZOLE NITRATE
     Indication: CANDIDA INFECTION
     Route: 067
     Dates: start: 20180516, end: 20180516
  10. ZYRTEC [Suspect]
     Active Substance: CETIRIZINE HYDROCHLORIDE
     Indication: DERMATITIS ATOPIC
     Dosage: 1 DF, QD
     Route: 048
     Dates: start: 2017
  11. VALACICLOVIR [Suspect]
     Active Substance: VALACYCLOVIR HYDROCHLORIDE
     Indication: HERPES SIMPLEX
     Route: 048
     Dates: start: 2017
  12. DUPIXENT [Suspect]
     Active Substance: DUPILUMAB
     Indication: DERMATITIS ATOPIC
     Dosage: ADDITIONAL INFO: DUPIXENT
     Route: 058
     Dates: start: 20180409, end: 20180409

REACTIONS (3)
  - Maternal exposure before pregnancy [Unknown]
  - Abortion spontaneous [Recovered/Resolved]
  - Exposure during pregnancy [Unknown]

NARRATIVE: CASE EVENT DATE: 20171120
